FAERS Safety Report 7021577-6 (Version None)
Quarter: 2010Q3

REPORT INFORMATION
  Report Type: 
  Country: None (occurrence: None)
  Receive Date: 20100928
  Receipt Date: 20100908
  Transmission Date: 20110219
  Serious: Yes (Hospitalization)
  Sender: FDA-Public Use
  Company Number: JPI-P-005054

PATIENT
  Age: 58 Year
  Sex: Female
  Weight: 52.1637 kg

DRUGS (22)
  1. XYREM [Suspect]
     Indication: INSOMNIA
     Dosage: SEE  IMAGE
     Route: 048
     Dates: start: 20080101, end: 20080101
  2. XYREM [Suspect]
     Indication: NARCOLEPSY
     Dosage: SEE  IMAGE
     Route: 048
     Dates: start: 20080101, end: 20080101
  3. XYREM [Suspect]
     Indication: INSOMNIA
     Dosage: SEE  IMAGE
     Route: 048
     Dates: start: 20090105, end: 20090105
  4. XYREM [Suspect]
     Indication: NARCOLEPSY
     Dosage: SEE  IMAGE
     Route: 048
     Dates: start: 20090105, end: 20090105
  5. XYREM [Suspect]
     Indication: INSOMNIA
     Dosage: SEE  IMAGE
     Route: 048
     Dates: start: 20100101, end: 20100908
  6. XYREM [Suspect]
     Indication: NARCOLEPSY
     Dosage: SEE  IMAGE
     Route: 048
     Dates: start: 20100101, end: 20100908
  7. XYREM [Suspect]
     Indication: INSOMNIA
     Dosage: SEE  IMAGE
     Route: 048
     Dates: start: 20080827
  8. XYREM [Suspect]
     Indication: NARCOLEPSY
     Dosage: SEE  IMAGE
     Route: 048
     Dates: start: 20080827
  9. XYREM [Suspect]
     Indication: INSOMNIA
     Dosage: SEE  IMAGE
     Route: 048
     Dates: start: 20080901
  10. XYREM [Suspect]
     Indication: NARCOLEPSY
     Dosage: SEE  IMAGE
     Route: 048
     Dates: start: 20080901
  11. XYREM [Suspect]
     Indication: INSOMNIA
     Dosage: SEE  IMAGE
     Route: 048
     Dates: start: 20080902
  12. XYREM [Suspect]
     Indication: NARCOLEPSY
     Dosage: SEE  IMAGE
     Route: 048
     Dates: start: 20080902
  13. XYREM [Suspect]
     Indication: INSOMNIA
     Dosage: SEE  IMAGE
     Route: 048
     Dates: start: 20081201
  14. XYREM [Suspect]
     Indication: NARCOLEPSY
     Dosage: SEE  IMAGE
     Route: 048
     Dates: start: 20081201
  15. XYREM [Suspect]
     Indication: INSOMNIA
     Dosage: SEE  IMAGE
     Route: 048
     Dates: start: 20081201
  16. XYREM [Suspect]
     Indication: NARCOLEPSY
     Dosage: SEE  IMAGE
     Route: 048
     Dates: start: 20081201
  17. XYREM [Suspect]
     Indication: INSOMNIA
     Dosage: SEE  IMAGE
     Route: 048
     Dates: start: 20100909
  18. XYREM [Suspect]
     Indication: NARCOLEPSY
     Dosage: SEE  IMAGE
     Route: 048
     Dates: start: 20100909
  19. UNSPECIFIED THYROID MEDICATION [Concomitant]
  20. EZETIMIBE AND SIMVASTATIN [Concomitant]
  21. ESTRADIOL [Concomitant]
  22. TESTOSTERONE [Concomitant]

REACTIONS (22)
  - BLOOD POTASSIUM DECREASED [None]
  - CHOKING [None]
  - CONDITION AGGRAVATED [None]
  - CONSTIPATION [None]
  - CONTUSION [None]
  - DECREASED APPETITE [None]
  - DEHYDRATION [None]
  - DIZZINESS [None]
  - DRUG INEFFECTIVE [None]
  - DRY MOUTH [None]
  - DYSGEUSIA [None]
  - HYPOPHAGIA [None]
  - LOSS OF LIBIDO [None]
  - NAUSEA [None]
  - NIGHT SWEATS [None]
  - ORAL CANDIDIASIS [None]
  - TINNITUS [None]
  - URINARY INCONTINENCE [None]
  - VERTIGO [None]
  - VISUAL IMPAIRMENT [None]
  - VOMITING [None]
  - VULVOVAGINAL DRYNESS [None]
